FAERS Safety Report 21334940 (Version 5)
Quarter: 2022Q4

REPORT INFORMATION
  Report Type: Spontaneous
  Country: AT (occurrence: AT)
  Receive Date: 20220914
  Receipt Date: 20221031
  Transmission Date: 20230113
  Serious: Yes (Hospitalization)
  Sender: FDA-Public Use
  Company Number: AT-ROCHE-3170820

PATIENT
  Age: 60 Year
  Sex: Female
  Weight: 86 kg

DRUGS (60)
  1. TUKYSA [Suspect]
     Active Substance: TUCATINIB
     Indication: HER2 positive breast cancer
     Dosage: 300 MG, BID
     Route: 048
     Dates: start: 20210618, end: 20211001
  2. TUKYSA [Suspect]
     Active Substance: TUCATINIB
     Dosage: 300 MG, BID
     Route: 058
     Dates: start: 20211028, end: 20211030
  3. TUKYSA [Suspect]
     Active Substance: TUCATINIB
     Dosage: 300 MG, BID
     Route: 058
     Dates: start: 20211105, end: 20211216
  4. TUKYSA [Suspect]
     Active Substance: TUCATINIB
     Dosage: 300 MG, BID
     Route: 058
     Dates: start: 20211230, end: 20220415
  5. TRASTUZUMAB [Suspect]
     Active Substance: TRASTUZUMAB
     Indication: HER2 positive breast cancer
     Dosage: 704 MG, Q3WEEKS
     Route: 042
     Dates: start: 20191014, end: 20191014
  6. TRASTUZUMAB [Suspect]
     Active Substance: TRASTUZUMAB
     Dosage: 516 MG, Q3WEEKS
     Route: 042
     Dates: start: 20191106, end: 20191106
  7. TRASTUZUMAB [Suspect]
     Active Substance: TRASTUZUMAB
     Dosage: 510 MG, Q3WEEKS
     Route: 042
     Dates: start: 20191128, end: 20191128
  8. TRASTUZUMAB [Suspect]
     Active Substance: TRASTUZUMAB
     Dosage: 510 MG, Q3WEEKS
     Route: 042
     Dates: start: 20200103
  9. TRASTUZUMAB [Suspect]
     Active Substance: TRASTUZUMAB
     Dosage: 510 MG, Q3WEEKS
     Route: 042
     Dates: start: 20200103, end: 20210223
  10. TRASTUZUMAB [Suspect]
     Active Substance: TRASTUZUMAB
     Indication: HER2 positive breast cancer
     Dosage: 600 MG, Q3WEEKS
     Route: 042
     Dates: start: 20210618, end: 20220715
  11. TRASTUZUMAB [Suspect]
     Active Substance: TRASTUZUMAB
     Dosage: 600 MG, Q3WEEKS
     Route: 042
     Dates: start: 20210618, end: 20210910
  12. TRASTUZUMAB [Suspect]
     Active Substance: TRASTUZUMAB
     Dosage: 600 MG, Q3WEEKS
     Route: 042
     Dates: start: 20211028
  13. CAPECITABINE [Suspect]
     Active Substance: CAPECITABINE
     Indication: HER2 positive breast cancer
     Dosage: 1350 MG, BID
     Route: 048
     Dates: start: 20210618, end: 20210924
  14. CAPECITABINE [Suspect]
     Active Substance: CAPECITABINE
     Dosage: 1350 MG,BID
     Route: 048
     Dates: start: 20211230, end: 20220415
  15. ADO-TRASTUZUMAB EMTANSINE [Suspect]
     Active Substance: ADO-TRASTUZUMAB EMTANSINE
     Indication: HER2 positive breast cancer
     Dosage: MOST RECENT DOSE 20/MAY/2021
     Route: 042
     Dates: start: 20210316
  16. TAMOXIFEN [Suspect]
     Active Substance: TAMOXIFEN
     Indication: HER2 positive breast cancer
     Route: 048
     Dates: start: 20210112, end: 20210304
  17. PERTUZUMAB [Suspect]
     Active Substance: PERTUZUMAB
     Indication: HER2 positive breast cancer
     Dosage: 840 MG, Q3WEEKS
     Route: 042
     Dates: start: 20191014, end: 20191014
  18. PERTUZUMAB [Suspect]
     Active Substance: PERTUZUMAB
     Dosage: 420 MG, Q3WEEKS
     Route: 042
     Dates: start: 20191106, end: 20191128
  19. PERTUZUMAB [Suspect]
     Active Substance: PERTUZUMAB
     Dosage: 420 MG, Q3WEEKS
     Route: 042
     Dates: start: 20200103, end: 20200103
  20. PERTUZUMAB [Suspect]
     Active Substance: PERTUZUMAB
     Dosage: 420 MG, Q3WEEKS
     Route: 042
     Dates: start: 20200103
  21. FULVESTRANT [Suspect]
     Active Substance: FULVESTRANT
     Indication: HER2 positive breast cancer
     Route: 048
     Dates: start: 20220601, end: 20220802
  22. LETROZOLE [Suspect]
     Active Substance: LETROZOLE
     Indication: HER2 positive breast cancer
     Dosage: 2.5 MG, QD
     Route: 048
     Dates: start: 20200210, end: 20200907
  23. LETROZOLE [Suspect]
     Active Substance: LETROZOLE
     Dosage: 2.5 MG, QD
     Route: 048
     Dates: start: 20201109, end: 202011
  24. PACLITAXEL [Suspect]
     Active Substance: PACLITAXEL
     Indication: HER2 positive breast cancer
     Dosage: 149.79 MG, QWEEK
     Route: 042
     Dates: start: 20191021, end: 20191205
  25. PACLITAXEL [Suspect]
     Active Substance: PACLITAXEL
     Dosage: 151.26 MG, QWEEK
     Route: 042
     Dates: start: 20191014, end: 20191014
  26. ABEMACICLIB [Suspect]
     Active Substance: ABEMACICLIB
     Indication: HER2 positive breast cancer
     Dosage: 150 MG, BID
     Route: 048
     Dates: start: 20220601, end: 20220623
  27. PACLITAXEL [Suspect]
     Active Substance: PACLITAXEL
     Indication: HER2 positive breast cancer
     Dosage: MOST RECENT DOSE PRIOR TO AE 27/JAN/2020
     Route: 042
     Dates: start: 20200103
  28. NOVALGIN (METAMIZOLE SODIUM) [Concomitant]
     Active Substance: METAMIZOLE SODIUM
     Indication: Chest pain
     Dosage: ONGOING = CHECKED
     Dates: start: 20200724
  29. DILTIAZEM [Concomitant]
     Active Substance: DILTIAZEM
     Dosage: ONGOING = NOT CHECKED
     Dates: end: 20220715
  30. LISINOPRIL [Concomitant]
     Active Substance: LISINOPRIL
     Dosage: ONGOING = NOT CHECKED
     Dates: end: 20220715
  31. PANTOPRAZOLE SODIUM [Concomitant]
     Active Substance: PANTOPRAZOLE SODIUM
     Dosage: ONGOING = CHECKED
  32. METOCLOPRAMIDE HYDROCHLORIDE [Concomitant]
     Active Substance: METOCLOPRAMIDE HYDROCHLORIDE
     Dosage: ONGOING = CHECKED
     Dates: start: 20191015
  33. VITAMINS WITH MINERALS [Concomitant]
     Active Substance: MINERALS\VITAMINS
     Dosage: ONGOING = CHECKED
  34. PASSEDAN [Concomitant]
     Dosage: ONGOING = CHECKED
     Dates: start: 20191010
  35. POLYETHYLENE GLYCOL 3350\POTASSIUM CHLORIDE\SODIUM BICARBONATE\SODIUM [Concomitant]
     Active Substance: POLYETHYLENE GLYCOL 3350\POTASSIUM CHLORIDE\SODIUM BICARBONATE\SODIUM CHLORIDE
     Dosage: ONGOING = CHECKED
     Dates: start: 20191015
  36. ROFLUMILAST [Concomitant]
     Active Substance: ROFLUMILAST
     Dosage: ONGOING = CHECKED
  37. BISOPROLOL FUMARATE [Concomitant]
     Active Substance: BISOPROLOL FUMARATE
     Dosage: ONGOING = NOT CHECKED
     Dates: end: 20220715
  38. BISOPROLOL FUMARATE [Concomitant]
     Active Substance: BISOPROLOL FUMARATE
     Dosage: ONGOING = CHECKED
     Dates: start: 20220715
  39. LAFENE [Concomitant]
     Dosage: ONGOING = CHECKED
     Dates: start: 20220115
  40. ALVESCO [Concomitant]
     Active Substance: CICLESONIDE
     Dosage: ONGOING = CHECKED
  41. TRAZODONE HYDROCHLORIDE [Concomitant]
     Active Substance: TRAZODONE HYDROCHLORIDE
     Dosage: ONGOING = CHECKED
  42. BEROTEC [Concomitant]
     Active Substance: FENOTEROL HYDROBROMIDE
     Dosage: ONGOING = CHECKED
  43. VENLAFAXINE HYDROCHLORIDE [Concomitant]
     Active Substance: VENLAFAXINE HYDROCHLORIDE
     Dosage: ONGOING = CHECKED
  44. OLODATEROL HYDROCHLORIDE\TIOTROPIUM BROMIDE MONOHYDRATE [Concomitant]
     Active Substance: OLODATEROL HYDROCHLORIDE\TIOTROPIUM BROMIDE MONOHYDRATE
     Dosage: ONGOING = CHECKED
  45. LOPERAMIDE HYDROCHLORIDE [Concomitant]
     Active Substance: LOPERAMIDE HYDROCHLORIDE
     Indication: Diarrhoea
     Dosage: ONGOING = CHECKED
     Dates: start: 20191024
  46. SIMVASTATIN [Concomitant]
     Active Substance: SIMVASTATIN
     Dosage: ONGOING = CHECKED
  47. HYDROMORPHONE HYDROCHLORIDE [Concomitant]
     Active Substance: HYDROMORPHONE HYDROCHLORIDE
     Dosage: ONGOING = CHECKED
     Dates: start: 20211230
  48. BECLOMETHASONE DIPROPIONATE\FORMOTEROL FUMARATE\GLYCOPYRROLATE [Concomitant]
     Active Substance: BECLOMETHASONE DIPROPIONATE\FORMOTEROL FUMARATE\GLYCOPYRROLATE
     Dosage: ONGOING = CHECKED
  49. DEXAMETHASONE [Concomitant]
     Active Substance: DEXAMETHASONE
     Indication: Fatigue
     Dosage: ONGOING = NOT CHECKED
     Dates: start: 20220810, end: 20220818
  50. CURAM [AMOXICILLIN;CLAVULANIC ACID] [Concomitant]
  51. KYTRIL [Concomitant]
     Active Substance: GRANISETRON HYDROCHLORIDE
     Dosage: UNK
  52. DIMETHINDENE [Concomitant]
     Active Substance: DIMETHINDENE
  53. PREDNISOLONE [Concomitant]
     Active Substance: PREDNISOLONE
  54. DEXAMETHASONE [Concomitant]
     Active Substance: DEXAMETHASONE
  55. TAZOBACTAM [Concomitant]
     Active Substance: TAZOBACTAM
  56. LEVOCETIRIZINE DIHYDROCHLORIDE [Concomitant]
     Active Substance: LEVOCETIRIZINE DIHYDROCHLORIDE
  57. LEVOFLOXACIN [Concomitant]
     Active Substance: LEVOFLOXACIN
  58. ULCUSAN [FAMOTIDINE] [Concomitant]
  59. AMOXICILLIN\CLAVULANATE POTASSIUM [Concomitant]
     Active Substance: AMOXICILLIN\CLAVULANATE POTASSIUM
  60. RANITIDINE HYDROCHLORIDE [Concomitant]
     Active Substance: RANITIDINE HYDROCHLORIDE

REACTIONS (1)
  - Fatigue [Not Recovered/Not Resolved]

NARRATIVE: CASE EVENT DATE: 20220715
